FAERS Safety Report 5008919-8 (Version None)
Quarter: 2006Q2

REPORT INFORMATION
  Report Type: 
  Country: None (occurrence: None)
  Receive Date: 20060518
  Receipt Date: 20060502
  Transmission Date: 20061013
  Serious: Yes (Hospitalization)
  Sender: FDA-Public Use
  Company Number: T06-IND-01018-01

PATIENT
  Age: 37 Year
  Sex: Male
  Weight: 64 kg

DRUGS (10)
  1. ESCITALOPRAM OXALATE [Suspect]
     Indication: DEPRESSION
     Dosage: 10 MG DAILY PO
     Route: 048
     Dates: start: 20060215, end: 20060221
  2. ESCITALOPRAM OXALATE [Suspect]
     Indication: DEPRESSION
     Dosage: 20 MG QD PO
     Route: 048
     Dates: start: 20060322
  3. LARPOSE (LORAZEPAM) [Concomitant]
  4. VINTURIN [Concomitant]
  5. HALOPERIDOL DECANOATE [Concomitant]
  6. SIZODON [Concomitant]
  7. BECOSULES [Concomitant]
  8. TOPAZ [Concomitant]
  9. QUTIPIN [Concomitant]
  10. PACITANE (TRIHEXYPHENIDYL HYDROCHLORIDE) [Concomitant]

REACTIONS (3)
  - AKATHISIA [None]
  - DECREASED APPETITE [None]
  - RESTLESSNESS [None]
